FAERS Safety Report 20737069 (Version 1)
Quarter: 2022Q2

REPORT INFORMATION
  Report Type: Spontaneous
  Country: US (occurrence: US)
  Receive Date: 20220421
  Receipt Date: 20220421
  Transmission Date: 20220720
  Serious: Yes (Hospitalization)
  Sender: FDA-Public Use
  Company Number: US-CHIESI USA, INC.-2022CHF01781

PATIENT
  Age: 26 Year
  Sex: Male

DRUGS (2)
  1. REVCOVI [Suspect]
     Active Substance: ELAPEGADEMASE-LVLR
     Indication: Combined immunodeficiency
     Dosage: 1.6MG ;2 TIMES PER WEEK
     Route: 065
     Dates: start: 20210707, end: 2021
  2. REVCOVI [Suspect]
     Active Substance: ELAPEGADEMASE-LVLR
     Dosage: 4.5ML,3ML(WEDNESDAY/SATURDAY)
     Route: 065
     Dates: start: 20210811

REACTIONS (3)
  - COVID-19 [Recovered/Resolved]
  - Abdominal pain [Unknown]
  - Haematochezia [Unknown]

NARRATIVE: CASE EVENT DATE: 20220328
